FAERS Safety Report 5537599-8 (Version None)
Quarter: 2007Q4

REPORT INFORMATION
  Report Type: 
  Country: None (occurrence: None)
  Receive Date: 20071207
  Receipt Date: 20071203
  Transmission Date: 20080405
  Serious: Yes (Other)
  Sender: FDA-Public Use
  Company Number: TR-AVENTIS-200721128GDDC

PATIENT
  Sex: Female
  Weight: 98 kg

DRUGS (4)
  1. LANTUS [Suspect]
     Route: 058
     Dates: start: 20070320
  2. AUTOPEN INSULIN INJECTION PEN [Suspect]
  3. METFORMIN HCL [Concomitant]
     Indication: DIABETES MELLITUS
     Dosage: DOSE QUANTITY: 2
     Route: 048
  4. ACARBOSE [Concomitant]
     Indication: DIABETES MELLITUS
     Dosage: DOSE QUANTITY: 2
     Route: 048

REACTIONS (1)
  - WEIGHT INCREASED [None]
